FAERS Safety Report 8583424-0 (Version None)
Quarter: 2012Q3

REPORT INFORMATION
  Report Type: 
  Country: None (occurrence: None)
  Receive Date: 20120809
  Receipt Date: 20120802
  Transmission Date: 20120928
  Serious: Yes (Other)
  Sender: FDA-Public Use
  Company Number: CHPA2012US016930

PATIENT
  Age: 62 Year
  Sex: Female

DRUGS (3)
  1. VOLTAREN [Suspect]
     Dosage: 4 G, QID
     Route: 061
     Dates: start: 20111101, end: 20111115
  2. VOLTAREN [Suspect]
     Indication: LIGAMENT SPRAIN
     Dosage: 4 G, QID
     Route: 061
     Dates: start: 20120726, end: 20120801
  3. IBUPROFEN [Concomitant]
     Dosage: UNK
     Dates: start: 20120529, end: 20120615

REACTIONS (11)
  - ATRIAL FIBRILLATION [None]
  - SCAR [None]
  - OFF LABEL USE [None]
  - HEART RATE IRREGULAR [None]
  - BLOOD POTASSIUM DECREASED [None]
  - SOFT TISSUE INJURY [None]
  - ARTHROPATHY [None]
  - HEART RATE INCREASED [None]
  - LIGAMENT RUPTURE [None]
  - BLOOD PRESSURE INCREASED [None]
  - THERAPEUTIC RESPONSE UNEXPECTED [None]
